FAERS Safety Report 10208425 (Version 1)
Quarter: 2014Q2

REPORT INFORMATION
  Report Type: Spontaneous
  Country: JP (occurrence: JP)
  Receive Date: 20140530
  Receipt Date: 20140530
  Transmission Date: 20141212
  Serious: Yes (Hospitalization)
  Sender: FDA-Public Use
  Company Number: JP-BRISTOL-MYERS SQUIBB COMPANY-20857660

PATIENT
  Age: 44 Year
  Sex: Male
  Weight: 51 kg

DRUGS (3)
  1. ERBITUX SOLN FOR INF 5MG/ML [Suspect]
     Indication: COLON CANCER
     Dosage: 28APR14-418 MG
     Route: 041
     Dates: start: 20131110, end: 20131110
  2. OXALIPLATIN [Concomitant]
     Indication: COLON CANCER
     Route: 041
  3. 5-FLUOROURACIL [Concomitant]
     Indication: COLON CANCER
     Dosage: 1 DF=669MG,500MG,335MG?14APR14
     Route: 041
     Dates: start: 20131110

REACTIONS (1)
  - Intestinal obstruction [Recovered/Resolved]
